FAERS Safety Report 4347885-5 (Version None)
Quarter: 2004Q2

REPORT INFORMATION
  Report Type: 
  Country: None (occurrence: None)
  Receive Date: 20040422
  Receipt Date: 20040419
  Transmission Date: 20050107
  Serious: Yes (Life-Threatening, Hospitalization)
  Sender: FDA-Public Use
  Company Number: ENTC2004-0025

PATIENT
  Age: 82 Year
  Sex: Male

DRUGS (5)
  1. STALEVO 50 [Suspect]
     Indication: PARKINSON'S DISEASE
     Dosage: 3 TIMES A DAY, ORAL
     Route: 048
     Dates: start: 20031112
  2. SEROQUEL [Concomitant]
  3. ARTANE [Concomitant]
  4. XANAX [Concomitant]
  5. LEXAPRO [Concomitant]

REACTIONS (3)
  - SYNCOPE [None]
  - TORSADE DE POINTES [None]
  - VENTRICULAR TACHYCARDIA [None]
